FAERS Safety Report 6807038-5 (Version None)
Quarter: 2010Q2

REPORT INFORMATION
  Report Type: 
  Country: None (occurrence: None)
  Receive Date: 20100629
  Receipt Date: 20080708
  Transmission Date: 20101027
  Serious: No
  Sender: FDA-Public Use
  Company Number: US-PFIZER INC-2008057069

PATIENT
  Sex: Female
  Weight: 65.5 kg

DRUGS (3)
  1. TIKOSYN [Suspect]
     Indication: ATRIAL FIBRILLATION
     Route: 048
     Dates: start: 20071201
  2. TIKOSYN [Suspect]
     Indication: ATRIAL FLUTTER
  3. ALL OTHER THERAPEUTIC PRODUCTS [Concomitant]
     Route: 048
     Dates: start: 19620101

REACTIONS (2)
  - FLUSHING [None]
  - SWELLING [None]
